FAERS Safety Report 14210269 (Version 1)
Quarter: 2017Q4

REPORT INFORMATION
  Report Type: Spontaneous
  Country: BR (occurrence: BR)
  Receive Date: 20171121
  Receipt Date: 20171121
  Transmission Date: 20180321
  Serious: Yes (Other)
  Sender: FDA-Public Use
  Company Number: BR-JNJFOC-20171119331

PATIENT
  Sex: Male

DRUGS (2)
  1. HALDOL [Suspect]
     Active Substance: HALOPERIDOL
     Indication: FEAR
     Route: 065
     Dates: start: 2015
  2. HALDOL [Suspect]
     Active Substance: HALOPERIDOL
     Indication: PANIC DISORDER
     Route: 065
     Dates: start: 2015

REACTIONS (5)
  - Product use in unapproved indication [Unknown]
  - Musculoskeletal stiffness [Unknown]
  - Malaise [Unknown]
  - Lip pain [Unknown]
  - Off label use [Unknown]
